FAERS Safety Report 16059716 (Version 2)
Quarter: 2019Q1

REPORT INFORMATION
  Report Type: Report from Study
  Country: US (occurrence: US)
  Receive Date: 20190311
  Receipt Date: 20190327
  Transmission Date: 20190418
  Serious: Yes (Hospitalization)
  Sender: FDA-Public Use
  Company Number: US-ACTELION-A-NJ2019-187322

PATIENT
  Sex: Male
  Weight: 4.08 kg

DRUGS (1)
  1. BOSENTAN TABLET 32 MG PED US [Suspect]
     Active Substance: BOSENTAN
     Indication: PULMONARY HYPERTENSION
     Dosage: 32 MG, BID, ONE 1/2 TABLET TWICE A DAY
     Route: 048

REACTIONS (3)
  - Complication associated with device [Unknown]
  - Hospitalisation [Unknown]
  - Product solubility abnormal [Unknown]
